FAERS Safety Report 21794213 (Version 1)
Quarter: 2022Q4

REPORT INFORMATION
  Report Type: Spontaneous
  Country: US (occurrence: None)
  Receive Date: 20221228
  Receipt Date: 20221228
  Transmission Date: 20230113
  Serious: Yes (Other)
  Sender: FDA-Public Use
  Company Number: None

PATIENT
  Age: 66 Year
  Sex: Female
  Weight: 150 kg

DRUGS (9)
  1. COSENTYX [Suspect]
     Active Substance: SECUKINUMAB
     Indication: Psoriatic arthropathy
     Dosage: 150 MG EVERY 4 WEEKS SUBCUTANEOUS
     Route: 058
     Dates: start: 20220411, end: 20221101
  2. NAPROXEN [Concomitant]
     Active Substance: NAPROXEN
  3. DULOXETINE [Concomitant]
     Active Substance: DULOXETINE
  4. TIZANIDINE [Concomitant]
     Active Substance: TIZANIDINE
  5. PANTOPRAZOLE [Concomitant]
     Active Substance: PANTOPRAZOLE
  6. ATORVASTATIN [Concomitant]
     Active Substance: ATORVASTATIN
  7. ARIPIPRAZOLE [Concomitant]
     Active Substance: ARIPIPRAZOLE
  8. ENBREL [Concomitant]
     Active Substance: ETANERCEPT
     Dates: start: 20220224, end: 20220411
  9. HUMIRA [Concomitant]
     Active Substance: ADALIMUMAB
     Dates: start: 20170101, end: 20220101

REACTIONS (1)
  - Invasive ductal breast carcinoma [None]

NARRATIVE: CASE EVENT DATE: 20221121
